FAERS Safety Report 17572401 (Version 1)
Quarter: 2020Q1

REPORT INFORMATION
  Report Type: Spontaneous
  Country: US (occurrence: US)
  Receive Date: 20200323
  Receipt Date: 20200323
  Transmission Date: 20200409
  Serious: Yes (Other)
  Sender: FDA-Public Use
  Company Number: US-KARYOPHARM-2020KPT000282

PATIENT

DRUGS (1)
  1. XPOVIO [Suspect]
     Active Substance: SELINEXOR
     Indication: PLASMA CELL MYELOMA
     Dosage: 60 MG, 3X/WEEK
     Route: 048
     Dates: start: 20200309

REACTIONS (2)
  - Cerebrovascular accident [Unknown]
  - Nausea [Unknown]

NARRATIVE: CASE EVENT DATE: 20200310
